FAERS Safety Report 5014388-4 (Version None)
Quarter: 2006Q2

REPORT INFORMATION
  Report Type: 
  Country: None (occurrence: None)
  Receive Date: 20060524
  Receipt Date: 20060517
  Transmission Date: 20061013
  Serious: Yes (Other)
  Sender: FDA-Public Use
  Company Number: HQWYE409619MAY06

PATIENT
  Sex: Female

DRUGS (1)
  1. PREMARIN [Suspect]

REACTIONS (3)
  - ADENOCARCINOMA [None]
  - BREAST CANCER [None]
  - SPINAL COMPRESSION FRACTURE [None]
